FAERS Safety Report 9371297 (Version 2)
Quarter: 2014Q2

REPORT INFORMATION
  Report Type: Report from Study
  Country: GB (occurrence: GB)
  Receive Date: 20130627
  Receipt Date: 20140419
  Transmission Date: 20141212
  Serious: Yes (Death, Hospitalization)
  Sender: FDA-Public Use
  Company Number: GB-ROCHE-1242113

PATIENT
  Age: 91 Year
  Sex: Male

DRUGS (2)
  1. RANIBIZUMAB [Suspect]
     Indication: AGE-RELATED MACULAR DEGENERATION
     Route: 050
     Dates: start: 20110614, end: 20130221
  2. RANIBIZUMAB [Suspect]
     Route: 050
     Dates: start: 20130221

REACTIONS (2)
  - Bronchopneumonia [Fatal]
  - Electrocardiogram T wave inversion [Unknown]
